FAERS Safety Report 9377646 (Version 1)
Quarter: 2013Q3

REPORT INFORMATION
  Report Type: Spontaneous
  Country: ZA (occurrence: ZA)
  Receive Date: 20130701
  Receipt Date: 20130701
  Transmission Date: 20140515
  Serious: Yes (Hospitalization)
  Sender: FDA-Public Use
  Company Number: ZA-JNJFOC-20130617697

PATIENT
  Age: 75 Year
  Sex: Male

DRUGS (3)
  1. XARELTO 10 [Suspect]
     Indication: THROMBOSIS PROPHYLAXIS
     Route: 048
  2. CELEBREX [Concomitant]
     Indication: PAIN
     Route: 065
  3. CLEXANE [Concomitant]
     Route: 065

REACTIONS (1)
  - Deep vein thrombosis [Unknown]
